FAERS Safety Report 17638199 (Version 3)
Quarter: 2020Q3

REPORT INFORMATION
  Report Type: Spontaneous
  Country: US (occurrence: US)
  Receive Date: 20200407
  Receipt Date: 20200819
  Transmission Date: 20201102
  Serious: Yes (Hospitalization, Other)
  Sender: FDA-Public Use
  Company Number: US-009507513-2004USA001254

PATIENT
  Age: 60 Year
  Sex: Female
  Weight: 86.17 kg

DRUGS (5)
  1. PREDNISONE. [Concomitant]
     Active Substance: PREDNISONE
     Dosage: UNK
     Dates: start: 200603
  2. FOSAMAX [Suspect]
     Active Substance: ALENDRONATE SODIUM
     Dosage: UNK
     Route: 048
     Dates: start: 201109, end: 201111
  3. MYFORTIC [Concomitant]
     Active Substance: MYCOPHENOLATE SODIUM
     Dosage: UNK
     Dates: start: 200403
  4. LEVEMIR [Concomitant]
     Active Substance: INSULIN DETEMIR
     Dosage: UNK
  5. RAPAMUNE [Concomitant]
     Active Substance: SIROLIMUS
     Indication: RENAL TRANSPLANT
     Dosage: UNK
     Dates: start: 2008

REACTIONS (27)
  - Skin cancer [Unknown]
  - Osteoporosis [Unknown]
  - Hernia [Unknown]
  - Blood glucose increased [Unknown]
  - Haemorrhoids [Unknown]
  - Joint injury [Unknown]
  - Drug hypersensitivity [Unknown]
  - Diverticulitis [Unknown]
  - Cellulitis [Unknown]
  - Squamous cell carcinoma of skin [Unknown]
  - Skin cancer [Unknown]
  - Oral disorder [Unknown]
  - Peripheral venous disease [Unknown]
  - Basal cell carcinoma [Unknown]
  - Pneumonia [Unknown]
  - Odynophagia [Unknown]
  - Abdominal infection [Unknown]
  - Hernia [Unknown]
  - Gastrointestinal disorder [Unknown]
  - Tooth infection [Unknown]
  - Diarrhoea [Unknown]
  - Basal cell carcinoma [Unknown]
  - Depression [Unknown]
  - Plantar fasciitis [Unknown]
  - Cystitis [Unknown]
  - Cystitis [Unknown]
  - Tooth fracture [Unknown]

NARRATIVE: CASE EVENT DATE: 201109
